FAERS Safety Report 10009978 (Version 1)
Quarter: 2014Q1

REPORT INFORMATION
  Report Type: Spontaneous
  Country: US (occurrence: US)
  Receive Date: 20140312
  Receipt Date: 20140312
  Transmission Date: 20141002
  Serious: No
  Sender: FDA-Public Use
  Company Number: US-INCYTE CORPORATION-2013IN000722

PATIENT
  Sex: Female

DRUGS (3)
  1. JAKAFI [Suspect]
     Indication: MYELOFIBROSIS
     Dosage: 15 MG, BID
     Route: 048
     Dates: start: 20111219
  2. JAKAFI [Suspect]
     Dosage: 7.5 MG, BID
     Route: 048
  3. THERAPEUTIC RADIOPHARMACEUTICALS [Concomitant]

REACTIONS (3)
  - Medication error [None]
  - Blood count abnormal [Unknown]
  - Platelet count decreased [Unknown]
